FAERS Safety Report 8891627 (Version 1)
Quarter: 2012Q4

REPORT INFORMATION
  Report Type: Report from Study
  Country: DE (occurrence: DE)
  Receive Date: 20121107
  Receipt Date: 20121107
  Transmission Date: 20130627
  Serious: Yes (Hospitalization)
  Sender: FDA-Public Use
  Company Number: DE-009507513-2012SP016231

PATIENT
  Sex: Male
  Weight: 74 kg

DRUGS (2)
  1. VICTRELIS [Suspect]
     Indication: CHRONIC HEPATITIS C
     Dosage: UNK
  2. PEGINTERFERON ALFA-2A [Suspect]
     Indication: CHRONIC HEPATITIS C
     Dosage: 180 ?g, QW 1 in-2
     Route: 058
     Dates: start: 20111221

REACTIONS (1)
  - Angioedema [Not Recovered/Not Resolved]
